FAERS Safety Report 6574545-2 (Version None)
Quarter: 2010Q1

REPORT INFORMATION
  Report Type: 
  Country: None (occurrence: None)
  Receive Date: 20100209
  Receipt Date: 20090811
  Transmission Date: 20100710
  Serious: No
  Sender: FDA-Public Use
  Company Number: A0799801A

PATIENT
  Sex: Female

DRUGS (1)
  1. PAXIL CR [Suspect]
     Indication: IRRITABLE BOWEL SYNDROME
     Dosage: 25.5MG VARIABLE DOSE
     Route: 048

REACTIONS (4)
  - AGITATION [None]
  - NERVOUSNESS [None]
  - PALPITATIONS [None]
  - TREMOR [None]
